FAERS Safety Report 9213665 (Version 1)
Quarter: 2013Q2

REPORT INFORMATION
  Report Type: Spontaneous
  Country: US (occurrence: US)
  Receive Date: 20130405
  Receipt Date: 20130405
  Transmission Date: 20140414
  Serious: Yes (Death)
  Sender: FDA-Public Use
  Company Number: US-ASTELLAS-2013US003592

PATIENT
  Age: 87 Year
  Sex: Male

DRUGS (1)
  1. TARCEVA [Suspect]
     Indication: LUNG CARCINOMA CELL TYPE UNSPECIFIED STAGE 0
     Dosage: 150 MG, UID/QD
     Route: 048
     Dates: start: 20050920, end: 20051005

REACTIONS (5)
  - Malignant neoplasm progression [Fatal]
  - Rash [Unknown]
  - Diarrhoea [Unknown]
  - Dyspnoea [Unknown]
  - Asthenia [Unknown]
